FAERS Safety Report 9300593 (Version 1)
Quarter: 2013Q1

REPORT INFORMATION
  Report Type: Spontaneous
  Country: US (occurrence: None)
  Receive Date: 20130107
  Receipt Date: 20130107
  Transmission Date: 20140127
  Serious: No
  Sender: FDA-Public Use
  Company Number: PHEH2012US020496

PATIENT
  Age: 36 Year
  Sex: Female
  Weight: 102 kg

DRUGS (9)
  1. GILENYA (FINGOLIMOD) CAPSULE [Suspect]
     Indication: RELAPSING-REMITTING MULTIPLE SCLEROSIS
     Route: 048
     Dates: start: 201107
  2. BACLOFEN [Suspect]
  3. ABILIFY (ARIPIPRAZOLE) [Suspect]
  4. ESKALITH (LITHIUM CARBONATE) [Suspect]
  5. GEODON (ZIPRASIDONE HYDROCHLORIDE) [Suspect]
  6. LAMICTAL (LAMOTRIGINE) [Suspect]
  7. VESICARE (SOLIFENACIN) [Suspect]
  8. WELLBUTRIN XL (BUPROPION HYDROCHLORIDE)(TABLETS)(BUPROPION HYDROCHLORIDE) [Suspect]
  9. YAZ [Suspect]

REACTIONS (15)
  - Extrapyramidal disorder [None]
  - Neutrophil percentage increased [None]
  - Urine abnormality [None]
  - Pain in extremity [None]
  - Fatigue [None]
  - Visual impairment [None]
  - Hypoaesthesia [None]
  - Blood pressure decreased [None]
  - Vision blurred [None]
  - Paraesthesia [None]
  - Lymphocyte count decreased [None]
  - Dyskinesia [None]
  - Tremor [None]
  - Muscle tightness [None]
  - Muscular weakness [None]
